FAERS Safety Report 13789576 (Version 3)
Quarter: 2018Q2

REPORT INFORMATION
  Report Type: Spontaneous
  Country: DE (occurrence: DE)
  Receive Date: 20170725
  Receipt Date: 20180409
  Transmission Date: 20180711
  Serious: Yes (Other)
  Sender: FDA-Public Use
  Company Number: DE-AUROBINDO-AUR-APL-2017-37803

PATIENT
  Sex: Female
  Weight: 1.49 kg

DRUGS (6)
  1. SODIUM HYDROGEN CARBONATE [Suspect]
     Active Substance: SODIUM BICARBONATE
     Indication: FOETAL EXPOSURE DURING PREGNANCY
     Dosage: MATERNAL DOSE UNKNOWN ()
     Route: 064
  2. CANDESARTAN CILEXETIL. [Suspect]
     Active Substance: CANDESARTAN CILEXETIL
     Indication: FOETAL EXPOSURE DURING PREGNANCY
     Dosage: MATERNAL DOSE UNKNOWN ()
     Route: 064
  3. BISOPROLOL [Suspect]
     Active Substance: BISOPROLOL
     Indication: HYPERTENSION
     Dosage: UNK
     Route: 064
  4. XIPAMIDE [Suspect]
     Active Substance: XIPAMIDE
     Indication: FOETAL EXPOSURE DURING PREGNANCY
     Dosage: MATERNAL DOSE UNKNOWN ()
     Route: 064
  5. COLESTILAN [Suspect]
     Active Substance: COLESTILAN CHLORIDE
     Indication: FOETAL EXPOSURE DURING PREGNANCY
     Dosage: MATERNAL DOSE UNKNOWN ()
     Route: 064
  6. CANDESARTAN. [Suspect]
     Active Substance: CANDESARTAN
     Indication: PRODUCT USED FOR UNKNOWN INDICATION
     Route: 064

REACTIONS (6)
  - Hypotension [Recovering/Resolving]
  - Foetal exposure during pregnancy [Unknown]
  - Anuria [Recovering/Resolving]
  - Low birth weight baby [Recovering/Resolving]
  - Acute kidney injury [Unknown]
  - Premature baby [Unknown]
